FAERS Safety Report 19880697 (Version 2)
Quarter: 2021Q3

REPORT INFORMATION
  Report Type: Spontaneous
  Country: FI (occurrence: FI)
  Receive Date: 20210924
  Receipt Date: 20210928
  Transmission Date: 20211014
  Serious: Yes (Other)
  Sender: FDA-Public Use
  Company Number: FI-GLAXOSMITHKLINE-FICH2021065696

PATIENT
  Sex: Female

DRUGS (2)
  1. NICOTINELL [Suspect]
     Active Substance: NICOTINE
     Indication: SMOKING CESSATION THERAPY
     Dosage: UNK
     Dates: start: 20210508
  2. NICOTINELL [Suspect]
     Active Substance: NICOTINE
     Indication: SMOKING CESSATION THERAPY
     Dosage: UNK

REACTIONS (12)
  - Application site pruritus [Recovering/Resolving]
  - Faeces discoloured [Recovering/Resolving]
  - Rectal haemorrhage [Unknown]
  - Haematochezia [Recovering/Resolving]
  - Ischiorectal hernia [Unknown]
  - Constipation [Recovering/Resolving]
  - Skin striae [Unknown]
  - Poor quality sleep [Recovering/Resolving]
  - Restless legs syndrome [Recovering/Resolving]
  - Skin haemorrhage [Recovering/Resolving]
  - Pruritus [Recovering/Resolving]
  - Scar [Recovering/Resolving]
